FAERS Safety Report 8501858-7 (Version None)
Quarter: 2012Q3

REPORT INFORMATION
  Report Type: 
  Country: None (occurrence: None)
  Receive Date: 20120711
  Receipt Date: 20120703
  Transmission Date: 20120928
  Serious: Yes (Hospitalization)
  Sender: FDA-Public Use
  Company Number: PHHY2012DE058030

PATIENT
  Age: 58 Year
  Sex: Male

DRUGS (1)
  1. DICLOFENAC SODIUM [Suspect]
     Indication: ARTHRALGIA
     Dosage: 1 TO 2 TABLETS
     Route: 048

REACTIONS (7)
  - MALAISE [None]
  - SKIN ULCER [None]
  - APHTHOUS STOMATITIS [None]
  - HAEMATOCHEZIA [None]
  - DIZZINESS [None]
  - GASTROINTESTINAL DISORDER [None]
  - MICROCYTIC ANAEMIA [None]
